FAERS Safety Report 9250623 (Version 1)
Quarter: 2013Q1

REPORT INFORMATION
  Report Type: Spontaneous
  Country: US (occurrence: None)
  Receive Date: 20130305
  Receipt Date: 20130305
  Transmission Date: 20140127
  Serious: Yes (Other)
  Sender: FDA-Public Use
  Company Number: 163-21880-12092949

PATIENT
  Age: 51 Year
  Sex: Female
  Weight: 91.63 kg

DRUGS (15)
  1. REVLIMID [Suspect]
     Indication: PLASMA CELL MYELOMA
     Dosage: 14 IN 21 D
     Route: 048
     Dates: start: 20120829
  2. CALCIUM [Concomitant]
  3. CYMBALTA (DULOXETINE HYDROCHLORIDE) [Concomitant]
  4. DEXAMETHASONE [Concomitant]
  5. ENOXAPARIN [Concomitant]
  6. FLONASE (FLUTICASONE PROPIONATE) [Concomitant]
  7. FUROSEMIDE [Concomitant]
  8. METAMUCIL (METAMUCIL ^PROCTER + GAMBLE^) [Concomitant]
  9. ONDANSETRON [Concomitant]
  10. VITAMINS [Concomitant]
  11. OPANA [Concomitant]
  12. SENOKOT (SENNA FRUIT) [Concomitant]
  13. TRAZODONE [Concomitant]
  14. VALIUM (DIAZEPAM) [Concomitant]
  15. VITAMIN D (ERGOCALCIFEROL) [Concomitant]

REACTIONS (2)
  - Nasal congestion [None]
  - Local swelling [None]
